FAERS Safety Report 9961723 (Version 1)
Quarter: 2014Q1

REPORT INFORMATION
  Report Type: Report from Study
  Country: US (occurrence: US)
  Receive Date: 20140305
  Receipt Date: 20140305
  Transmission Date: 20141002
  Serious: No
  Sender: FDA-Public Use
  Company Number: US-ABBVIE-13P-163-1111169-00

PATIENT
  Age: 48 Year
  Sex: Female

DRUGS (26)
  1. HUMIRA [Suspect]
     Indication: COLITIS ULCERATIVE
     Dates: start: 20130228
  2. HUMIRA [Suspect]
     Dates: start: 201303
  3. LORTAB [Concomitant]
     Indication: PAIN
     Dosage: 10 MG 1 TABLET 3 TIMES A DAY
  4. RESTORIL [Concomitant]
     Indication: INSOMNIA
  5. XANAX [Concomitant]
     Indication: ANXIETY
     Dosage: 0.5 MG 1 TABLET IN THE AM AND 1 AT BEDTIME
  6. XANAX [Concomitant]
     Indication: PANIC ATTACK
  7. CALCIUM WITH VITAMIN D2 [Concomitant]
     Indication: PRODUCT USED FOR UNKNOWN INDICATION
     Dosage: DAILY
  8. NASALCROM [Concomitant]
     Indication: PRODUCT USED FOR UNKNOWN INDICATION
     Dosage: 1 SPRAY IN EACH NOSTRIL AT BEDTIME AS NEEDED
     Route: 045
  9. ASPIRIN [Concomitant]
     Indication: PRODUCT USED FOR UNKNOWN INDICATION
     Dosage: 81 MG DAILY
  10. MIRALAX [Concomitant]
     Indication: GASTROINTESTINAL DISORDER
     Dosage: 1 CAPFUL IN WATER DAILY
  11. TYLENOL [Concomitant]
     Indication: PAIN
     Dosage: 500 3 TABLETS FOUR TIMES DAILY
  12. TYLENOL PM [Concomitant]
     Indication: INSOMNIA
     Dosage: 2 TABLETS AT BEDTIME
  13. CRESTOR [Concomitant]
     Indication: BLOOD CHOLESTEROL INCREASED
  14. LASIX [Concomitant]
     Indication: FLUID RETENTION
  15. POTASSIUM [Concomitant]
     Indication: PRODUCT USED FOR UNKNOWN INDICATION
  16. ZOFRAN [Concomitant]
     Indication: NAUSEA
  17. BETHANECHOL [Concomitant]
     Indication: DYSPEPSIA
  18. METOPROLOL [Concomitant]
     Indication: CARDIAC DISORDER
     Dosage: 25 MG 1/2 TABLET IN AM AND 1/2 TABLET AT BEDTIME
  19. METFORMIN [Concomitant]
     Indication: ILL-DEFINED DISORDER
     Dosage: 500 MG 1 TABLET IN THE MORNING AND 1 TABLET AT BEDTIME
  20. BUDESONIDE [Concomitant]
     Indication: COLITIS ULCERATIVE
     Dosage: 3 MG 1 TABLET IN AM AND 1 AT BEDTIME
  21. DICOYCLOMINE [Concomitant]
     Indication: ABDOMINAL PAIN UPPER
     Dosage: 10 MG 1 TABLET IN THE AM AND 1 TABLET AT BEDTIME
  22. ROBAXIN [Concomitant]
     Indication: MUSCLE SPASMS
     Dosage: 750 MG 1 IN AM AND 1 AT BEDTIME
  23. OXAPROZIN [Concomitant]
     Indication: BACK DISORDER
     Dosage: 600 MG 1 IN AM AND 1 BEDTIME
  24. PRED FORTE [Concomitant]
     Indication: PRODUCT USED FOR UNKNOWN INDICATION
     Dosage: 1 DROP IN EACH EYE AT BEDTIME
     Route: 047
  25. CYCLOGYL [Concomitant]
     Indication: PRODUCT USED FOR UNKNOWN INDICATION
     Dosage: 1 DROP IN EACH EYE AT BEDTIME
  26. KENALOG [Concomitant]
     Indication: PRODUCT USED FOR UNKNOWN INDICATION

REACTIONS (11)
  - Malaise [Not Recovered/Not Resolved]
  - Injection site pain [Not Recovered/Not Resolved]
  - Injection site pain [Not Recovered/Not Resolved]
  - Diarrhoea [Not Recovered/Not Resolved]
  - Cough [Not Recovered/Not Resolved]
  - Vomiting [Not Recovered/Not Resolved]
  - Dysphonia [Not Recovered/Not Resolved]
  - Sputum discoloured [Not Recovered/Not Resolved]
  - Abdominal distension [Not Recovered/Not Resolved]
  - Bowel movement irregularity [Not Recovered/Not Resolved]
  - Pain [Not Recovered/Not Resolved]
